FAERS Safety Report 8123446-7 (Version None)
Quarter: 2012Q1

REPORT INFORMATION
  Report Type: 
  Country: None (occurrence: None)
  Receive Date: 20120208
  Receipt Date: 20120130
  Transmission Date: 20120608
  Serious: Yes (Hospitalization, Other)
  Sender: FDA-Public Use
  Company Number: PHHY2011FR109786

PATIENT
  Sex: Male
  Weight: 80 kg

DRUGS (9)
  1. BISOPROLOL FUMARATE AND HYDROCHLOROTHIAZIDE [Concomitant]
     Dates: start: 20000101
  2. ALLOPURINOL [Concomitant]
  3. ONBREZ [Suspect]
     Indication: CHRONIC OBSTRUCTIVE PULMONARY DISEASE
     Dosage: UNK
     Dates: start: 20111018, end: 20111116
  4. BETASERC [Concomitant]
  5. AMLODIPINE BESYLATE AND OLMESARTAN MEDOXOMIL [Concomitant]
  6. BRONCHODUAL [Concomitant]
  7. PANTOPRAZOLE [Concomitant]
  8. MODOPAR [Concomitant]
  9. SYMBICORT [Suspect]
     Dosage: UNK
     Dates: start: 20110720, end: 20111116

REACTIONS (4)
  - BLOOD PRESSURE DECREASED [None]
  - PULMONARY CONGESTION [None]
  - CARDIOPULMONARY FAILURE [None]
  - DYSPNOEA [None]
